FAERS Safety Report 12198221 (Version 3)
Quarter: 2016Q4

REPORT INFORMATION
  Report Type: Spontaneous
  Country: US (occurrence: US)
  Receive Date: 20160322
  Receipt Date: 20161202
  Transmission Date: 20170207
  Serious: No
  Sender: FDA-Public Use
  Company Number: US-JNJFOC-20150320124

PATIENT
  Sex: Male
  Weight: 92.08 kg

DRUGS (13)
  1. GEODON [Suspect]
     Active Substance: ZIPRASIDONE HYDROCHLORIDE\ZIPRASIDONE MESYLATE
     Indication: HYPOTONIA
     Dosage: THREE 70 MG TABLETS EVERY MORNING AND NIGHT
     Route: 048
     Dates: start: 2004, end: 2016
  2. OLANZAPINE. [Concomitant]
     Active Substance: OLANZAPINE
     Indication: HYPERTENSION
     Dosage: 2 TABLETS
     Route: 065
  3. PROPRANOLOL [Concomitant]
     Active Substance: PROPRANOLOL\PROPRANOLOL HYDROCHLORIDE
     Indication: HYPERTENSION
     Route: 065
  4. COGENTIN [Suspect]
     Active Substance: BENZTROPINE MESYLATE
     Indication: PRODUCT USED FOR UNKNOWN INDICATION
     Route: 065
  5. GEODON [Suspect]
     Active Substance: ZIPRASIDONE HYDROCHLORIDE\ZIPRASIDONE MESYLATE
     Indication: EUPHORIC MOOD
     Dosage: THREE 70 MG TABLETS EVERY MORNING AND NIGHT
     Route: 048
     Dates: start: 2004, end: 2016
  6. ANDROSTENEDIONE [Suspect]
     Active Substance: ANDROSTENEDIONE
     Indication: PRODUCT USED FOR UNKNOWN INDICATION
     Route: 065
  7. HYDROCHLOROTHIAZIDE. [Concomitant]
     Active Substance: HYDROCHLOROTHIAZIDE
     Indication: HYPERTENSION
     Route: 065
  8. RISPERDAL CONSTA [Suspect]
     Active Substance: RISPERIDONE
     Indication: SPERMATOZOA ABNORMAL
     Route: 030
     Dates: start: 2009, end: 2013
  9. VALPROIC ACID. [Suspect]
     Active Substance: VALPROIC ACID
     Indication: DEPRESSION
     Dosage: SIX 10 MG CAPSULES TWICE A DAY (MORNING AND NIGHT)
     Route: 065
     Dates: start: 2009
  10. VALPROIC ACID. [Suspect]
     Active Substance: VALPROIC ACID
     Indication: DEPRESSION
     Route: 065
  11. DEPAKOTE [Suspect]
     Active Substance: DIVALPROEX SODIUM
     Indication: MUSCLE RELAXANT THERAPY
     Dosage: SIX CAPSULES IN THE MORNING AND SIX CAPSULES AT NIGHT
     Route: 065
     Dates: start: 2004
  12. ATENOLOL. [Concomitant]
     Active Substance: ATENOLOL
     Route: 065
  13. RISPERDAL [Suspect]
     Active Substance: RISPERIDONE
     Indication: PRODUCT USED FOR UNKNOWN INDICATION
     Route: 065

REACTIONS (15)
  - Erectile dysfunction [Recovering/Resolving]
  - Gynaecomastia [Not Recovered/Not Resolved]
  - Vision blurred [Not Recovered/Not Resolved]
  - Palpitations [Unknown]
  - Sluggishness [Unknown]
  - Product use issue [Unknown]
  - Vocal cord disorder [Not Recovered/Not Resolved]
  - Off label use [Unknown]
  - Hip deformity [Not Recovered/Not Resolved]
  - Testicular disorder [Unknown]
  - Dry mouth [Unknown]
  - Inappropriate schedule of drug administration [Unknown]
  - Hernia [Unknown]
  - Weight increased [Recovering/Resolving]
  - Hypersomnia [Unknown]

NARRATIVE: CASE EVENT DATE: 2004
